FAERS Safety Report 17255261 (Version 1)
Quarter: 2020Q1

REPORT INFORMATION
  Report Type: Spontaneous
  Country: PR (occurrence: PR)
  Receive Date: 20200110
  Receipt Date: 20200110
  Transmission Date: 20200409
  Serious: Yes (Hospitalization)
  Sender: FDA-Public Use
  Company Number: PR-ALEXION PHARMACEUTICALS INC.-A202000033

PATIENT
  Age: 40 Year
  Sex: Female

DRUGS (2)
  1. SOLIRIS [Suspect]
     Active Substance: ECULIZUMAB
     Indication: ATYPICAL HAEMOLYTIC URAEMIC SYNDROME
     Dosage: UNK
     Route: 065
  2. SOLIRIS [Suspect]
     Active Substance: ECULIZUMAB
     Dosage: 900 MG, QW
     Route: 042
     Dates: start: 20191219, end: 20191223

REACTIONS (1)
  - Renal transplant [Not Recovered/Not Resolved]

NARRATIVE: CASE EVENT DATE: 20191218
